FAERS Safety Report 14195838 (Version 1)
Quarter: 2017Q4

REPORT INFORMATION
  Report Type: Spontaneous
  Country: US (occurrence: US)
  Receive Date: 20171116
  Receipt Date: 20171116
  Transmission Date: 20180321
  Serious: No
  Sender: FDA-Public Use
  Company Number: US-ALLERGAN-1724153US

PATIENT
  Sex: Female
  Weight: 63.49 kg

DRUGS (1)
  1. RHOFADE [Suspect]
     Active Substance: OXYMETAZOLINE HYDROCHLORIDE
     Indication: ROSACEA
     Dosage: 1 DF, QD
     Route: 061
     Dates: start: 20170510, end: 20170531

REACTIONS (1)
  - Erythema [Recovered/Resolved]
